FAERS Safety Report 24422336 (Version 1)
Quarter: 2024Q4

REPORT INFORMATION
  Report Type: Spontaneous
  Country: US (occurrence: None)
  Receive Date: 20241009
  Receipt Date: 20241009
  Transmission Date: 20250115
  Serious: No
  Sender: Public
  Company Number: None

PATIENT
  Age: 45 Year
  Sex: Male

DRUGS (1)
  1. SILDENAFIL CITRATE [Suspect]
     Active Substance: SILDENAFIL CITRATE

REACTIONS (2)
  - Priapism [None]
  - Urine flow decreased [None]

NARRATIVE: CASE EVENT DATE: 20240609
